FAERS Safety Report 7128289-9 (Version None)
Quarter: 2010Q4

REPORT INFORMATION
  Report Type: 
  Country: None (occurrence: None)
  Receive Date: 20101130
  Receipt Date: 20101116
  Transmission Date: 20110411
  Serious: Yes (Other)
  Sender: FDA-Public Use
  Company Number: PHHY2010JP78217

PATIENT

DRUGS (2)
  1. DIOVAN [Suspect]
     Route: 048
  2. ACTOS [Concomitant]
     Route: 048

REACTIONS (1)
  - SWELLING FACE [None]
